FAERS Safety Report 16858270 (Version 1)
Quarter: 2019Q3

REPORT INFORMATION
  Report Type: Spontaneous
  Country: US (occurrence: US)
  Receive Date: 20190926
  Receipt Date: 20190926
  Transmission Date: 20191005
  Serious: Yes (Congenital Anomaly, Other)
  Sender: FDA-Public Use
  Company Number: US-PFIZER INC-2019411182

PATIENT

DRUGS (3)
  1. FOLIC ACID. [Concomitant]
     Active Substance: FOLIC ACID
     Dosage: 4 MG, DAILY
     Route: 064
  2. TOPIRAMATE. [Suspect]
     Active Substance: TOPIRAMATE
     Indication: GENERALISED TONIC-CLONIC SEIZURE
     Dosage: 75 MG, 2X/DAY
     Route: 064
     Dates: start: 2013
  3. CELONTIN [Suspect]
     Active Substance: METHSUXIMIDE
     Indication: PETIT MAL EPILEPSY
     Dosage: 600 MG, 2X/DAY
     Route: 064
     Dates: start: 2015

REACTIONS (2)
  - Brachycephaly [Unknown]
  - Maternal exposure during pregnancy [Unknown]
